FAERS Safety Report 8495420-2 (Version None)
Quarter: 2012Q3

REPORT INFORMATION
  Report Type: 
  Country: None (occurrence: None)
  Receive Date: 20120702
  Receipt Date: 20120702
  Transmission Date: 20120928
  Serious: Yes (Other)
  Sender: FDA-Public Use
  Company Number: None

PATIENT
  Age: 62 Year
  Sex: Male
  Weight: 107.7 kg

DRUGS (1)
  1. LENALIDOMIDE [Suspect]
     Indication: DIFFUSE LARGE B-CELL LYMPHOMA
     Dosage: ONE C DAILY 2 WKS ON 1 WK OFF PO
     Route: 048
     Dates: start: 20120606, end: 20120612

REACTIONS (10)
  - ABDOMINAL PAIN [None]
  - CHILLS [None]
  - WEIGHT DECREASED [None]
  - FATIGUE [None]
  - MALAISE [None]
  - NAUSEA [None]
  - DIARRHOEA [None]
  - VOMITING [None]
  - ASTHENIA [None]
  - DIZZINESS [None]
